FAERS Safety Report 5284377-3 (Version None)
Quarter: 2007Q1

REPORT INFORMATION
  Report Type: 
  Country: None (occurrence: None)
  Receive Date: 20070328
  Receipt Date: 20070316
  Transmission Date: 20070707
  Serious: Yes (Other)
  Sender: FDA-Public Use
  Company Number: CHNY2007DE01025

PATIENT
  Age: 47 Year
  Sex: Female
  Weight: 54 kg

DRUGS (1)
  1. NICOTINE [Suspect]
     Indication: SMOKING CESSATION THERAPY
     Dosage: 14 MG, QD; TRANSDERMAL
     Route: 062
     Dates: start: 20070125, end: 20070126

REACTIONS (4)
  - APPLICATION SITE RASH [None]
  - HYPERHIDROSIS [None]
  - NIGHTMARE [None]
  - PALPITATIONS [None]
